FAERS Safety Report 14083909 (Version 2)
Quarter: 2017Q4

REPORT INFORMATION
  Report Type: Report from Study
  Country: None (occurrence: US)
  Receive Date: 20171013
  Receipt Date: 20171109
  Transmission Date: 20180321
  Serious: Yes (Hospitalization, Other)
  Sender: FDA-Public Use
  Company Number: US-ABBVIE-17K-163-2112773-00

PATIENT
  Sex: Female
  Weight: 64.47 kg

DRUGS (6)
  1. CALCIUM [Concomitant]
     Active Substance: CALCIUM
     Indication: PRODUCT USED FOR UNKNOWN INDICATION
  2. VITAMIN B12 [Concomitant]
     Active Substance: CYANOCOBALAMIN
     Indication: PRODUCT USED FOR UNKNOWN INDICATION
  3. OCUVITE [Concomitant]
     Active Substance: VITAMINS
     Indication: PRODUCT USED FOR UNKNOWN INDICATION
  4. OSTEOFLEX [Concomitant]
     Active Substance: ASCORBIC ACID\CHONDROITIN SULFATE (BOVINE)\GLUCOSAMINE SULFATE\MANGANESE
     Indication: PRODUCT USED FOR UNKNOWN INDICATION
  5. AMLODIPINE [Concomitant]
     Active Substance: AMLODIPINE BESYLATE
     Indication: PRODUCT USED FOR UNKNOWN INDICATION
  6. HUMIRA [Suspect]
     Active Substance: ADALIMUMAB
     Indication: CROHN^S DISEASE
     Route: 058
     Dates: start: 201012

REACTIONS (7)
  - Dermatitis [Not Recovered/Not Resolved]
  - Large intestinal stenosis [Recovered/Resolved]
  - Hypertension [Not Recovered/Not Resolved]
  - Skin papilloma [Not Recovered/Not Resolved]
  - Nasopharyngitis [Unknown]
  - Squamous cell carcinoma of skin [Not Recovered/Not Resolved]
  - Blepharitis [Not Recovered/Not Resolved]

NARRATIVE: CASE EVENT DATE: 2014
